FAERS Safety Report 17301392 (Version 1)
Quarter: 2020Q1

REPORT INFORMATION
  Report Type: Spontaneous
  Country: US (occurrence: US)
  Receive Date: 20200122
  Receipt Date: 20200122
  Transmission Date: 20200409
  Serious: Yes (Other)
  Sender: FDA-Public Use
  Company Number: US-SUNOVION-2020SUN000159

PATIENT
  Sex: Male

DRUGS (1)
  1. APTIOM [Suspect]
     Active Substance: ESLICARBAZEPINE ACETATE
     Indication: PRODUCT USED FOR UNKNOWN INDICATION
     Dosage: 200 MG, SIX TIMES A DAY
     Route: 048

REACTIONS (5)
  - Ear injury [Unknown]
  - Off label use [Unknown]
  - Seizure [Unknown]
  - Inappropriate schedule of product administration [Unknown]
  - Fall [Unknown]
